FAERS Safety Report 6644613-5 (Version None)
Quarter: 2010Q1

REPORT INFORMATION
  Report Type: 
  Country: None (occurrence: None)
  Receive Date: 20100322
  Receipt Date: 20100310
  Transmission Date: 20100710
  Serious: Yes (Other)
  Sender: FDA-Public Use
  Company Number: TR-PFIZER INC-2010032310

PATIENT
  Age: 61 Year
  Sex: Male

DRUGS (1)
  1. AZITHROMYCIN [Suspect]
     Dosage: 500 MG, 1X/DAY

REACTIONS (1)
  - OESOPHAGEAL ULCER [None]
